FAERS Safety Report 12525031 (Version 2)
Quarter: 2016Q3

REPORT INFORMATION
  Report Type: Spontaneous
  Country: US (occurrence: US)
  Receive Date: 20160704
  Receipt Date: 20160930
  Transmission Date: 20161109
  Serious: Yes (Other)
  Sender: FDA-Public Use
  Company Number: US-TEVA-672359USA

PATIENT
  Age: 66 Year
  Sex: Male

DRUGS (5)
  1. PERCOCET [Concomitant]
     Active Substance: ACETAMINOPHEN\OXYCODONE HYDROCHLORIDE
  2. ALBUTEROL. [Concomitant]
     Active Substance: ALBUTEROL
  3. ONDANSETRON [Concomitant]
     Active Substance: ONDANSETRON
  4. ETOPOSIDE. [Suspect]
     Active Substance: ETOPOSIDE
     Indication: SMALL CELL LUNG CANCER
     Dosage: 20 MG/ML, 500 MG
     Dates: start: 20160608, end: 20160608
  5. SINGULAIR [Concomitant]
     Active Substance: MONTELUKAST SODIUM

REACTIONS (6)
  - Gaze palsy [Recovered/Resolved]
  - Staring [Recovered/Resolved]
  - Muscle rigidity [Recovered/Resolved]
  - Chest discomfort [Recovered/Resolved]
  - Unresponsive to stimuli [Recovered/Resolved]
  - Dyskinesia [Recovered/Resolved]

NARRATIVE: CASE EVENT DATE: 20160608
